FAERS Safety Report 6078866-1 (Version None)
Quarter: 2009Q1

REPORT INFORMATION
  Report Type: 
  Country: None (occurrence: None)
  Receive Date: 20090216
  Receipt Date: 20090203
  Transmission Date: 20090719
  Serious: Yes (Hospitalization, Other)
  Sender: FDA-Public Use
  Company Number: PHHO2009US00784

PATIENT
  Sex: Male
  Weight: 92.7 kg

DRUGS (2)
  1. STI571/CGP57148B T35717+CAPS [Suspect]
     Indication: NEOPLASM
     Dosage: 400 MG, BID DAY 1 TO DAY 4
     Route: 048
     Dates: start: 20081208, end: 20090128
  2. TAXOL [Suspect]
     Indication: NEOPLASM
     Dosage: 100 MG/M2, UNK
     Route: 042
     Dates: start: 20081208, end: 20090121

REACTIONS (21)
  - BODY TEMPERATURE INCREASED [None]
  - BRONCHOPNEUMONIA [None]
  - CHEST DISCOMFORT [None]
  - CHILLS [None]
  - DIARRHOEA [None]
  - DYSPNOEA [None]
  - FATIGUE [None]
  - FEBRILE NEUTROPENIA [None]
  - HEART RATE INCREASED [None]
  - HILAR LYMPHADENOPATHY [None]
  - HYPERHIDROSIS [None]
  - INFECTION [None]
  - INTERSTITIAL LUNG DISEASE [None]
  - LUNG INFILTRATION [None]
  - MALIGNANT NEOPLASM PROGRESSION [None]
  - NEUTROPENIA [None]
  - PLEURAL EFFUSION [None]
  - PYREXIA [None]
  - RASH [None]
  - RIB FRACTURE [None]
  - TACHYPNOEA [None]
